FAERS Safety Report 5148547-7 (Version None)
Quarter: 2006Q4

REPORT INFORMATION
  Report Type: 
  Country: None (occurrence: None)
  Receive Date: 20060918
  Receipt Date: 20060816
  Transmission Date: 20070319
  Serious: Yes (Other)
  Sender: FDA-Public Use
  Company Number: US-JNJFOC-20060804159

PATIENT
  Age: 16 Year
  Sex: Female
  Weight: 119.296 kg

DRUGS (1)
  1. ORTHO EVRA [Suspect]
     Indication: CONTRACEPTION
     Dosage: 1 DOSE(S), 3 IN 4 WEEK, TRANSDERMAL
     Route: 062
     Dates: start: 20050501, end: 20051001

REACTIONS (3)
  - APPLICATION SITE PRURITUS [None]
  - PULMONARY EMBOLISM [None]
  - WEIGHT INCREASED [None]
